FAERS Safety Report 11185087 (Version 1)
Quarter: 2015Q2

REPORT INFORMATION
  Report Type: Spontaneous
  Country: US (occurrence: None)
  Receive Date: 20150601
  Receipt Date: 20150601
  Transmission Date: 20150821
  Serious: Yes (Other)
  Sender: FDA-Public Use
  Company Number: 2013-003416

PATIENT
  Age: 77 Year
  Sex: Female

DRUGS (7)
  1. BONIVA [Suspect]
     Active Substance: IBANDRONATE SODIUM
     Indication: OSTEOPOROSIS PROPHYLAXIS
  2. BONIVA [Suspect]
     Active Substance: IBANDRONATE SODIUM
     Indication: OSTEOPOROSIS
  3. FOSAMAX [Suspect]
     Active Substance: ALENDRONATE SODIUM
     Indication: OSTEOPOROSIS PROPHYLAXIS
     Route: 048
  4. ACTONEL [Suspect]
     Active Substance: RISEDRONATE SODIUM
     Indication: OSTEOPOROSIS
     Route: 048
  5. FOSAMAX [Suspect]
     Active Substance: ALENDRONATE SODIUM
     Indication: OSTEOPOROSIS
     Route: 048
  6. ACTONEL [Suspect]
     Active Substance: RISEDRONATE SODIUM
     Indication: OSTEOPOROSIS PROPHYLAXIS
     Route: 048
  7. ALPRAZOLAM (ALPRAZOLAM) [Concomitant]
     Active Substance: ALPRAZOLAM

REACTIONS (17)
  - Skeletal injury [None]
  - Primary sequestrum [None]
  - Gingival swelling [None]
  - Implant site pain [None]
  - Gingival abscess [None]
  - Purulent discharge [None]
  - Excessive granulation tissue [None]
  - Dental fistula [None]
  - Osteomyelitis chronic [None]
  - Gingival recession [None]
  - Gingival erythema [None]
  - Gingival pain [None]
  - Osteonecrosis of jaw [None]
  - Exostosis of jaw [None]
  - Device failure [None]
  - Bone loss [None]
  - Noninfective gingivitis [None]

NARRATIVE: CASE EVENT DATE: 20110308
